FAERS Safety Report 12660466 (Version 2)
Quarter: 2016Q3

REPORT INFORMATION
  Report Type: Report from Study
  Country: CA (occurrence: CA)
  Receive Date: 20160817
  Receipt Date: 20160902
  Transmission Date: 20161109
  Serious: Yes (Other)
  Sender: FDA-Public Use
  Company Number: CA-TAKEDA-2016TUS013858

PATIENT
  Age: 58 Year
  Sex: Male

DRUGS (1)
  1. VEDOLIZUMAB [Suspect]
     Active Substance: VEDOLIZUMAB
     Indication: CROHN^S DISEASE
     Dosage: 300 MG, UNK
     Route: 042
     Dates: start: 20160630, end: 20160714

REACTIONS (9)
  - Neck pain [Unknown]
  - Bradyphrenia [Unknown]
  - Feeling abnormal [Unknown]
  - Anxiety [Unknown]
  - Hypersensitivity [Unknown]
  - Confusional state [Unknown]
  - Fatigue [Unknown]
  - Amnesia [Unknown]
  - Dysarthria [Unknown]

NARRATIVE: CASE EVENT DATE: 2016
